FAERS Safety Report 21462509 (Version 1)
Quarter: 2022Q4

REPORT INFORMATION
  Report Type: Spontaneous
  Country: US (occurrence: None)
  Receive Date: 20221014
  Receipt Date: 20221014
  Transmission Date: 20230113
  Serious: Yes (Hospitalization)
  Sender: FDA-Public Use
  Company Number: None

PATIENT
  Age: 81 Year
  Sex: Male
  Weight: 74.84 kg

DRUGS (7)
  1. PEGASYS [Suspect]
     Active Substance: PEGINTERFERON ALFA-2A
     Indication: Polycythaemia vera
     Dosage: FREQUENCY : WEEKLY;?
     Route: 058
     Dates: start: 201511, end: 20221009
  2. AMLODIPINE [Concomitant]
     Active Substance: AMLODIPINE BESYLATE
  3. ASPIRIN [Concomitant]
     Active Substance: ASPIRIN
  4. ELIQUIS [Concomitant]
     Active Substance: APIXABAN
  5. LIPITOR [Concomitant]
     Active Substance: ATORVASTATIN CALCIUM
  6. METOPROLOL [Concomitant]
     Active Substance: METOPROLOL
  7. MULTI COMPLETE [Concomitant]

REACTIONS (7)
  - Syncope [None]
  - Fall [None]
  - Contusion [None]
  - Haemorrhage [None]
  - Peripheral swelling [None]
  - Cardiac disorder [None]
  - Therapy interrupted [None]
